FAERS Safety Report 5949427-7 (Version None)
Quarter: 2008Q4

REPORT INFORMATION
  Report Type: 
  Country: None (occurrence: None)
  Receive Date: 20081112
  Receipt Date: 20081031
  Transmission Date: 20090506
  Serious: Yes (Other)
  Sender: FDA-Public Use
  Company Number: PHHY2008JP26941

PATIENT
  Age: 18 Year
  Sex: Female

DRUGS (2)
  1. TEGRETOL [Suspect]
     Indication: CONVULSION
     Route: 048
  2. TEGRETOL [Suspect]
     Indication: MELAS SYNDROME

REACTIONS (1)
  - PSYCHIATRIC SYMPTOM [None]
